FAERS Safety Report 6996839-9 (Version None)
Quarter: 2010Q3

REPORT INFORMATION
  Report Type: 
  Country: None (occurrence: None)
  Receive Date: 20100918
  Receipt Date: 20091002
  Transmission Date: 20110219
  Serious: No
  Sender: FDA-Public Use
  Company Number: US-WYE-H10285609

PATIENT
  Sex: Female
  Weight: 86.26 kg

DRUGS (8)
  1. PRISTIQ [Suspect]
     Indication: MAJOR DEPRESSION
     Route: 048
     Dates: start: 20090602, end: 20090619
  2. PRISTIQ [Suspect]
     Route: 048
     Dates: start: 20090620, end: 20090703
  3. PROZAC [Concomitant]
  4. VITAMIN B [Concomitant]
  5. VIVELLE [Concomitant]
  6. TESTOSTERONE [Concomitant]
  7. TEMAZEPAM [Suspect]
     Indication: INSOMNIA
     Route: 048
     Dates: start: 20090515
  8. L-METHYLFOLATE [Concomitant]

REACTIONS (2)
  - MUSCLE SPASMS [None]
  - PAIN IN EXTREMITY [None]
